FAERS Safety Report 18531014 (Version 2)
Quarter: 2020Q4

REPORT INFORMATION
  Report Type: Spontaneous
  Country: JP (occurrence: JP)
  Receive Date: 20201122
  Receipt Date: 20201130
  Transmission Date: 20210114
  Serious: Yes (Hospitalization)
  Sender: FDA-Public Use
  Company Number: JP-JNJFOC-20201134966

PATIENT
  Sex: Male

DRUGS (4)
  1. VESICARE [Concomitant]
     Active Substance: SOLIFENACIN SUCCINATE
     Dosage: UNK
     Route: 065
  2. INSULIN DEGLUDEC;LIRAGLUTIDE [Concomitant]
     Dosage: UNK
     Route: 065
  3. MIGLITOL. [Concomitant]
     Active Substance: MIGLITOL
     Dosage: UNK
     Route: 065
  4. CANAGLIFLOZIN [Suspect]
     Active Substance: CANAGLIFLOZIN
     Indication: PRODUCT USED FOR UNKNOWN INDICATION
     Dosage: 100 MILLIGRAM, QD
     Route: 048
     Dates: start: 202003

REACTIONS (1)
  - Prostatic abscess [Unknown]
